FAERS Safety Report 17942459 (Version 1)
Quarter: 2020Q2

REPORT INFORMATION
  Report Type: Other
  Country: US (occurrence: US)
  Receive Date: 20200625
  Receipt Date: 20200625
  Transmission Date: 20200714
  Serious: Yes (Congenital Anomaly, Other)
  Sender: FDA-Public Use
  Company Number: US-APPCO PHARMA LLC-2086663

PATIENT
  Sex: Male

DRUGS (4)
  1. CLINDAMYCIN PALMITATE HYDROCHLORIDE. [Suspect]
     Active Substance: CLINDAMYCIN PALMITATE HYDROCHLORIDE
     Indication: BABESIOSIS
     Route: 064
  2. ATOVAQUONE. [Suspect]
     Active Substance: ATOVAQUONE
     Route: 064
  3. AZITHROMYCIN ANHYDROUS. [Suspect]
     Active Substance: AZITHROMYCIN ANHYDROUS
     Route: 064
  4. QUININE SULFATE. [Suspect]
     Active Substance: QUININE SULFATE
     Route: 064

REACTIONS (3)
  - Cutaneous extramedullary haemopoiesis [Unknown]
  - Foetal exposure during pregnancy [Unknown]
  - Acute myeloid leukaemia [Unknown]
